FAERS Safety Report 16404035 (Version 1)
Quarter: 2019Q2

REPORT INFORMATION
  Report Type: Spontaneous
  Country: CN (occurrence: CN)
  Receive Date: 20190607
  Receipt Date: 20190607
  Transmission Date: 20190711
  Serious: Yes (Hospitalization, Other)
  Sender: FDA-Public Use
  Company Number: CN-BAYER-2019-104505

PATIENT
  Sex: Male
  Weight: 55 kg

DRUGS (2)
  1. AVELOX [Suspect]
     Active Substance: MOXIFLOXACIN HYDROCHLORIDE
     Indication: LUNG INFECTION
     Dosage: 0.4 G, QD
     Route: 041
     Dates: start: 20190508, end: 20190510
  2. AVELOX [Suspect]
     Active Substance: MOXIFLOXACIN HYDROCHLORIDE
     Indication: SEPTIC SHOCK

REACTIONS (7)
  - Confusional state [None]
  - Abnormal behaviour [Recovered/Resolved]
  - Nervous system disorder [Recovered/Resolved]
  - Depressed level of consciousness [Recovered/Resolved]
  - Hallucination [None]
  - Restlessness [Recovered/Resolved]
  - Cyanosis [None]

NARRATIVE: CASE EVENT DATE: 20190510
